FAERS Safety Report 7395778-1 (Version None)
Quarter: 2011Q2

REPORT INFORMATION
  Report Type: 
  Country: None (occurrence: None)
  Receive Date: 20110405
  Receipt Date: 20110405
  Transmission Date: 20111010
  Serious: Yes (Life-Threatening, Hospitalization)
  Sender: FDA-Public Use
  Company Number: FR-BAYER-2011-029136

PATIENT
  Sex: Female

DRUGS (5)
  1. ULTRAVIST 150 [Suspect]
     Indication: COMPUTERISED TOMOGRAM
     Dosage: 1 DF, ONCE
     Route: 042
     Dates: start: 20100922, end: 20100922
  2. ULTRAVIST 150 [Suspect]
     Dosage: 1 DF, ONCE
     Route: 042
     Dates: start: 20100923, end: 20100923
  3. CIFLOX [Concomitant]
     Dosage: 200 MG (2 PERFUSION PER DAY)
     Route: 042
     Dates: start: 20100922, end: 20100924
  4. LOVENOX [Concomitant]
     Dosage: 2 PER DAY
     Route: 058
     Dates: start: 20100922, end: 20100924
  5. AUGMENTIN [Concomitant]
     Dosage: 1 G (2 PERFUSION PER DAY)
     Route: 042
     Dates: start: 20100922, end: 20100924

REACTIONS (3)
  - RENAL FAILURE ACUTE [None]
  - HYPERKALAEMIA [None]
  - METABOLIC ACIDOSIS [None]
